FAERS Safety Report 6968434-9 (Version None)
Quarter: 2010Q3

REPORT INFORMATION
  Report Type: 
  Country: None (occurrence: None)
  Receive Date: 20100907
  Receipt Date: 20100825
  Transmission Date: 20110219
  Serious: Yes (Other)
  Sender: FDA-Public Use
  Company Number: PHHY2010IN57665

PATIENT
  Age: 56 Year
  Sex: Female

DRUGS (1)
  1. ZOLEDRONIC ACID [Suspect]
     Indication: METASTASES TO BONE
     Dosage: 4 MG MONTHLY FOR LAST 9 MONTHS
     Route: 042

REACTIONS (5)
  - BONE DISORDER [None]
  - ERYTHEMA [None]
  - OSTEITIS [None]
  - OSTEONECROSIS OF JAW [None]
  - PURULENT DISCHARGE [None]
